FAERS Safety Report 9732897 (Version 1)
Quarter: 2013Q4

REPORT INFORMATION
  Report Type: Spontaneous
  Country: GB (occurrence: GB)
  Receive Date: 20131205
  Receipt Date: 20131205
  Transmission Date: 20140711
  Serious: Yes (Other)
  Sender: FDA-Public Use
  Company Number: GB-PFIZER INC-2013342741

PATIENT
  Sex: Male

DRUGS (1)
  1. LINEZOLID [Suspect]
     Indication: OSTEOMYELITIS
     Dosage: UNK
     Dates: start: 2008

REACTIONS (2)
  - Drug ineffective [Unknown]
  - Localised infection [Unknown]
